FAERS Safety Report 5248395-3 (Version None)
Quarter: 2007Q1

REPORT INFORMATION
  Report Type: 
  Country: None (occurrence: None)
  Receive Date: 20070222
  Receipt Date: 20070216
  Transmission Date: 20070707
  Serious: Yes (Hospitalization)
  Sender: FDA-Public Use
  Company Number: CIP07000346

PATIENT
  Age: 83 Year
  Sex: Female

DRUGS (5)
  1. MACROBID [Suspect]
     Dosage: 100 MG TWICE DAILY FOR SEVEN DAYS, ORAL
     Route: 048
  2. SYNTHROID [Concomitant]
  3. DIOVAN /01319601/ (VALSARTAN) [Concomitant]
  4. LUTEIN (XANTOFYL) [Concomitant]
  5. CALCIUM (CALCIUM) [Concomitant]

REACTIONS (5)
  - ATRIAL FIBRILLATION [None]
  - BLOOD PRESSURE FLUCTUATION [None]
  - EAR PAIN [None]
  - HEADACHE [None]
  - PAIN [None]
